FAERS Safety Report 13270983 (Version 1)
Quarter: 2017Q1

REPORT INFORMATION
  Report Type: Spontaneous
  Country: SE (occurrence: SE)
  Receive Date: 20170225
  Receipt Date: 20170225
  Transmission Date: 20170428
  Serious: Yes (Life-Threatening)
  Sender: FDA-Public Use
  Company Number: SE-ASTRAZENECA-2017SE17970

PATIENT
  Age: 29 Year
  Sex: Male

DRUGS (12)
  1. OCULENTUM SIMPLEX APL [Concomitant]
  2. VICTOZA [Concomitant]
     Active Substance: LIRAGLUTIDE
  3. ULTRACORTENOL [Concomitant]
     Active Substance: PREDNISOLONE ACETATE
  4. VOXRA [Concomitant]
     Active Substance: BUPROPION HYDROCHLORIDE
  5. IPREN [Concomitant]
     Active Substance: IBUPROFEN
  6. ISOPTO-MAXIDEX [Concomitant]
  7. STILNOCT [Concomitant]
     Active Substance: ZOLPIDEM TARTRATE
  8. ARTELAC [Concomitant]
     Active Substance: HYPROMELLOSES
  9. ISOPTO-ATROPIN [Concomitant]
  10. TIPAROL [Concomitant]
     Active Substance: TRAMADOL HYDROCHLORIDE
  11. FORXIGA [Suspect]
     Active Substance: DAPAGLIFLOZIN
     Indication: DIABETES MELLITUS
     Dosage: 10.0MG UNKNOWN
     Route: 048
     Dates: start: 2014, end: 201702
  12. ALVEDON [Concomitant]
     Active Substance: ACETAMINOPHEN

REACTIONS (1)
  - Diabetic ketoacidosis [Not Recovered/Not Resolved]

NARRATIVE: CASE EVENT DATE: 20170201
